FAERS Safety Report 25317045 (Version 1)
Quarter: 2025Q2

REPORT INFORMATION
  Report Type: Spontaneous
  Country: CO (occurrence: CO)
  Receive Date: 20250515
  Receipt Date: 20250515
  Transmission Date: 20250716
  Serious: Yes (Death)
  Sender: ALEXION PHARMACEUTICALS
  Company Number: CO-AstraZeneca-CH-00867759A

PATIENT
  Age: 71 Year

DRUGS (1)
  1. TAGRISSO [Suspect]
     Active Substance: OSIMERTINIB
     Indication: Lung disorder
     Dosage: 80 MILLIGRAM, QD

REACTIONS (2)
  - Metastases to central nervous system [Fatal]
  - Hydrocephalus [Fatal]
